FAERS Safety Report 25041576 (Version 2)
Quarter: 2025Q2

REPORT INFORMATION
  Report Type: Spontaneous
  Country: US (occurrence: US)
  Receive Date: 20250305
  Receipt Date: 20250403
  Transmission Date: 20250716
  Serious: No
  Sender: BAYER
  Company Number: US-BAYER-2025A029202

PATIENT
  Age: 44 Year
  Sex: Female
  Weight: 79 kg

DRUGS (2)
  1. MIRENA [Suspect]
     Active Substance: LEVONORGESTREL
     Indication: Pancreatic carcinoma
     Dosage: 20?G/DAY
     Route: 015
     Dates: start: 20250206
  2. FERROUS SULFATE [Concomitant]
     Active Substance: FERROUS SULFATE
     Route: 048
     Dates: start: 20250219

REACTIONS (5)
  - Genital haemorrhage [None]
  - Device dislocation [Not Recovered/Not Resolved]
  - Device use issue [None]
  - Uterine leiomyoma [None]
  - Heavy menstrual bleeding [None]

NARRATIVE: CASE EVENT DATE: 20250101
